FAERS Safety Report 6709434-3 (Version None)
Quarter: 2010Q2

REPORT INFORMATION
  Report Type: 
  Country: None (occurrence: None)
  Receive Date: 20100504
  Receipt Date: 20100419
  Transmission Date: 20101027
  Serious: Yes (Hospitalization)
  Sender: FDA-Public Use
  Company Number: US-EISAI INC.-E3810-03750-SPO-US

PATIENT
  Sex: Male

DRUGS (2)
  1. ACIPHEX [Suspect]
     Indication: GASTROOESOPHAGEAL REFLUX DISEASE
     Route: 048
     Dates: start: 20040101
  2. HYO MAX [Concomitant]
     Dosage: UNKNOWN
     Route: 065

REACTIONS (2)
  - CORONARY ARTERY OCCLUSION [None]
  - DRUG INEFFECTIVE [None]
